FAERS Safety Report 23197801 (Version 1)
Quarter: 2023Q4

REPORT INFORMATION
  Report Type: Spontaneous
  Country: US (occurrence: None)
  Receive Date: 20231117
  Receipt Date: 20231117
  Transmission Date: 20240110
  Serious: Yes (Death)
  Sender: FDA-Public Use
  Company Number: None

PATIENT
  Age: 83 Year
  Sex: Female

DRUGS (6)
  1. AMBRISENTAN [Suspect]
     Active Substance: AMBRISENTAN
     Indication: Pulmonary arterial hypertension
     Dosage: 10 MG ORAL\\
     Route: 048
     Dates: start: 20210623
  2. BENZONATATE [Concomitant]
     Active Substance: BENZONATATE
  3. BUDESONIDE [Concomitant]
     Active Substance: BUDESONIDE
  4. IPRATROPIUM/SOL ALBUTER [Concomitant]
  5. TADALAFIL [Concomitant]
     Active Substance: TADALAFIL
  6. TORSEMIDE [Concomitant]
     Active Substance: TORSEMIDE

REACTIONS (1)
  - Death [None]

NARRATIVE: CASE EVENT DATE: 20231110
